FAERS Safety Report 9346938 (Version 2)
Quarter: 2013Q2

REPORT INFORMATION
  Report Type: Spontaneous
  Country: JP (occurrence: JP)
  Receive Date: 20130613
  Receipt Date: 20130625
  Transmission Date: 20140414
  Serious: Yes (Death)
  Sender: FDA-Public Use
  Company Number: JP-BAXTER-2013BAX021578

PATIENT
  Sex: Male

DRUGS (2)
  1. DIANEAL-N PD-2 2.5 PD SOLUTION [Suspect]
     Indication: RENAL FAILURE CHRONIC
     Route: 033
     Dates: end: 20130604
  2. DIANEAL-N PD-2 2.5 PD SOLUTION [Suspect]
     Route: 033
     Dates: end: 20130604

REACTIONS (1)
  - Cardiac failure [Fatal]
